FAERS Safety Report 5699322-6 (Version None)
Quarter: 2008Q2

REPORT INFORMATION
  Report Type: 
  Country: None (occurrence: None)
  Receive Date: 20080404
  Receipt Date: 20080325
  Transmission Date: 20081010
  Serious: Yes (Hospitalization)
  Sender: FDA-Public Use
  Company Number: 232132J08USA

PATIENT
  Age: 39 Year
  Sex: Female
  Weight: 75.7507 kg

DRUGS (2)
  1. REBIF [Suspect]
     Indication: MULTIPLE SCLEROSIS
     Dosage: 44 MCG, 3 IN 1 WEEKS, SUBCUTANEOUS
     Route: 058
     Dates: start: 20071113
  2. COUMADIN [Concomitant]

REACTIONS (7)
  - BLOOD PRESSURE DECREASED [None]
  - DEEP VEIN THROMBOSIS [None]
  - DRUG INEFFECTIVE [None]
  - FEELING ABNORMAL [None]
  - INTERNATIONAL NORMALISED RATIO DECREASED [None]
  - MENSTRUATION IRREGULAR [None]
  - MULTIPLE SCLEROSIS RELAPSE [None]
